FAERS Safety Report 8618749-3 (Version None)
Quarter: 2012Q3

REPORT INFORMATION
  Report Type: 
  Country: None (occurrence: None)
  Receive Date: 20120824
  Receipt Date: 20120817
  Transmission Date: 20120928
  Serious: Yes (Hospitalization, Other)
  Sender: FDA-Public Use
  Company Number: US-CELGENEUS-163-21880-12080662

PATIENT
  Sex: Female

DRUGS (8)
  1. DUREZOL [Concomitant]
     Route: 065
  2. TIMOLOL MALEATE [Concomitant]
     Route: 065
  3. REVLIMID [Suspect]
     Indication: MULTIPLE MYELOMA
     Dosage: 10 MILLIGRAM
     Route: 048
     Dates: start: 20090320
  4. NEVANAC [Concomitant]
     Route: 065
  5. LATANOPROST [Concomitant]
     Route: 065
  6. VIGAMOX [Concomitant]
     Route: 065
  7. REVLIMID [Suspect]
     Dosage: 10 MILLIGRAM
     Route: 048
     Dates: start: 20090902
  8. VITAMIN B-12 [Concomitant]
     Route: 065

REACTIONS (4)
  - CATARACT [None]
  - NEUROPATHY PERIPHERAL [None]
  - FATIGUE [None]
  - GLAUCOMA [None]
